FAERS Safety Report 7285409-3 (Version None)
Quarter: 2011Q1

REPORT INFORMATION
  Report Type: 
  Country: None (occurrence: None)
  Receive Date: 20110121
  Receipt Date: 20090713
  Transmission Date: 20110831
  Serious: No
  Sender: FDA-Public Use
  Company Number: AE 2009-083

PATIENT
  Age: 49 Year
  Sex: Male

DRUGS (3)
  1. HALDOL [Concomitant]
  2. ATIVAN [Concomitant]
  3. FAZACLO ODT [Suspect]
     Indication: SCHIZOPHRENIA
     Dosage: 300 MG DAILY PO
     Route: 048
     Dates: start: 20090702, end: 20090713

REACTIONS (1)
  - TACHYCARDIA [None]
